FAERS Safety Report 4974558-8 (Version None)
Quarter: 2006Q1

REPORT INFORMATION
  Report Type: 
  Country: None (occurrence: None)
  Receive Date: 20060215
  Receipt Date: 20050104
  Transmission Date: 20060701
  Serious: Yes (Other)
  Sender: FDA-Public Use
  Company Number: PROG00205000021

PATIENT
  Age: 72 Year
  Sex: Female

DRUGS (4)
  1. PROMETRIUM [Suspect]
     Indication: HORMONE THERAPY
     Dosage: DAILY
     Dates: start: 20010501, end: 20020301
  2. ESTRATEST H.S. [Suspect]
     Indication: HORMONE THERAPY
     Dosage: DAILY
     Dates: start: 20010501, end: 20020301
  3. PREMPRO [Suspect]
     Indication: HORMONE THERAPY
     Dosage: DAILY
     Dates: start: 19960601, end: 20010101
  4. PREMARIN [Suspect]
     Indication: HORMONE THERAPY
     Dosage: DAILY
     Dates: start: 19850101, end: 19960101

REACTIONS (1)
  - BREAST CANCER [None]
